FAERS Safety Report 7384372-4 (Version None)
Quarter: 2011Q1

REPORT INFORMATION
  Report Type: 
  Country: None (occurrence: None)
  Receive Date: 20110330
  Receipt Date: 20100304
  Transmission Date: 20110831
  Serious: Yes (Death, Hospitalization, Other)
  Sender: FDA-Public Use
  Company Number: US-BAYER-201015438NA

PATIENT
  Sex: Male
  Weight: 104 kg

DRUGS (8)
  1. ANCEF [Concomitant]
     Indication: PRODUCT USED FOR UNKNOWN INDICATION
     Dosage: 1 G, UNK
     Route: 042
     Dates: start: 20060607, end: 20060607
  2. UNIPHYL [Concomitant]
     Indication: PRODUCT USED FOR UNKNOWN INDICATION
     Dosage: 200 MG, BID
     Route: 048
  3. DARVOCET [Concomitant]
     Indication: PRODUCT USED FOR UNKNOWN INDICATION
     Dosage: 100 MG, PRN
     Route: 048
  4. FENTANYL [Concomitant]
     Indication: PRODUCT USED FOR UNKNOWN INDICATION
     Dosage: 30MCG
     Route: 042
     Dates: start: 20060607, end: 20060607
  5. MIDAZOLAM [Concomitant]
     Indication: PRODUCT USED FOR UNKNOWN INDICATION
     Dosage: 25 MG, UNK
     Route: 042
     Dates: start: 20060607, end: 20060607
  6. ROCURONIUM [Concomitant]
     Indication: PRODUCT USED FOR UNKNOWN INDICATION
     Dosage: 100 MG, UNK
     Route: 042
     Dates: start: 20060607, end: 20060607
  7. TRASYLOL [Suspect]
     Indication: CORONARY ARTERY BYPASS
     Dates: start: 20060607
  8. ALBUTEROL [Concomitant]
     Indication: PRODUCT USED FOR UNKNOWN INDICATION
     Dosage: INHALED

REACTIONS (7)
  - RENAL FAILURE [None]
  - CEREBROVASCULAR ACCIDENT [None]
  - RENAL FAILURE ACUTE [None]
  - DEATH [None]
  - PAIN [None]
  - INJURY [None]
  - MYOCARDIAL INFARCTION [None]
